FAERS Safety Report 5642015-1 (Version None)
Quarter: 2008Q1

REPORT INFORMATION
  Report Type: 
  Country: None (occurrence: None)
  Receive Date: 20080227
  Receipt Date: 20080215
  Transmission Date: 20080703
  Serious: Yes (Other)
  Sender: FDA-Public Use
  Company Number: FR-PFIZER INC-2008015023

PATIENT
  Sex: Female

DRUGS (1)
  1. LYRICA [Suspect]
     Indication: FIBROMYALGIA

REACTIONS (4)
  - BULIMIA NERVOSA [None]
  - PERIPHERAL COLDNESS [None]
  - RESPIRATORY DISORDER [None]
  - WEIGHT INCREASED [None]
